FAERS Safety Report 25740897 (Version 1)
Quarter: 2025Q3

REPORT INFORMATION
  Report Type: Spontaneous
  Country: EU (occurrence: EU)
  Receive Date: 20250829
  Receipt Date: 20250829
  Transmission Date: 20251021
  Serious: Yes (Hospitalization)
  Sender: MYLAN
  Company Number: None

PATIENT
  Age: 72 Year
  Sex: Male
  Weight: 61 kg

DRUGS (4)
  1. FENTANYL [Suspect]
     Active Substance: FENTANYL
     Indication: Cancer pain
     Dosage: 150 MICROGRAM, QH,PCA WITH A FLOW RATE OF 150?G/H AND A BOLUS OF 150 ?G, ONCE PER HOUR
     Dates: start: 20250315, end: 20250317
  2. FENTANYL [Suspect]
     Active Substance: FENTANYL
     Dosage: 150 MICROGRAM, QH,PCA WITH A FLOW RATE OF 150?G/H AND A BOLUS OF 150 ?G, ONCE PER HOUR
     Route: 042
     Dates: start: 20250315, end: 20250317
  3. FENTANYL [Suspect]
     Active Substance: FENTANYL
     Dosage: 150 MICROGRAM, QH,PCA WITH A FLOW RATE OF 150?G/H AND A BOLUS OF 150 ?G, ONCE PER HOUR
     Route: 042
     Dates: start: 20250315, end: 20250317
  4. FENTANYL [Suspect]
     Active Substance: FENTANYL
     Dosage: 150 MICROGRAM, QH,PCA WITH A FLOW RATE OF 150?G/H AND A BOLUS OF 150 ?G, ONCE PER HOUR
     Dates: start: 20250315, end: 20250317

REACTIONS (2)
  - Bradypnoea [Recovered/Resolved]
  - Accidental overdose [Recovered/Resolved]

NARRATIVE: CASE EVENT DATE: 20250317
